FAERS Safety Report 4286965-X (Version None)
Quarter: 2004Q1

REPORT INFORMATION
  Report Type: 
  Country: None (occurrence: None)
  Receive Date: 20040206
  Receipt Date: 20031201
  Transmission Date: 20041129
  Serious: Yes (Life-Threatening, Hospitalization, Other)
  Sender: FDA-Public Use
  Company Number: WAES 0312BEL00004

PATIENT
  Age: 52 Year
  Sex: Male
  Weight: 70 kg

DRUGS (19)
  1. ACYCLOVIR [Concomitant]
     Route: 041
     Dates: start: 20031027, end: 20031027
  2. ACYCLOVIR [Concomitant]
     Route: 041
     Dates: start: 20031027, end: 20031027
  3. ZOVIRAX [Concomitant]
     Route: 042
  4. AMIKACIN [Concomitant]
     Route: 051
     Dates: start: 20031027
  5. FUNGIZONE [Concomitant]
     Indication: ASPERGILLOSIS
     Route: 042
     Dates: start: 20031011, end: 20031011
  6. CANCIDAS [Suspect]
     Indication: ASPERGILLOSIS
     Route: 042
     Dates: start: 20031012, end: 20031013
  7. CANCIDAS [Suspect]
     Route: 042
     Dates: start: 20031013, end: 20031107
  8. MAXIPIME [Concomitant]
     Route: 041
     Dates: start: 20031027
  9. FOLIC ACID [Concomitant]
     Route: 048
     Dates: start: 20030922
  10. LASIX [Concomitant]
     Route: 042
     Dates: start: 20030924
  11. ITRACONAZOLE [Concomitant]
     Indication: PROPHYLAXIS
     Route: 048
     Dates: start: 20030922, end: 20031010
  12. DUPHALAC [Concomitant]
     Route: 048
     Dates: start: 20030923
  13. LINEZOLID [Concomitant]
     Route: 048
  14. TEMESTA [Concomitant]
     Indication: INSOMNIA
     Route: 058
  15. POVIDONE [Concomitant]
     Dates: start: 20030922
  16. PROPACETAMOL HYDROCHLORIDE [Concomitant]
     Route: 042
     Dates: start: 20030924
  17. PYRIDOXINE [Concomitant]
     Route: 048
  18. ZANTAC [Concomitant]
     Indication: PROPHYLAXIS AGAINST GASTROINTESTINAL ULCER
     Route: 042
  19. VITAMINS (UNSPECIFIED) [Concomitant]
     Route: 048
     Dates: start: 20030922

REACTIONS (1)
  - DRUG INEFFECTIVE [None]
